FAERS Safety Report 15438141 (Version 1)
Quarter: 2018Q3

REPORT INFORMATION
  Report Type: Spontaneous
  Country: FR (occurrence: FR)
  Receive Date: 20180928
  Receipt Date: 20180928
  Transmission Date: 20181010
  Serious: Yes (Other)
  Sender: FDA-Public Use
  Company Number: FR-ROCHE-2189526

PATIENT
  Age: 50 Year
  Sex: Female

DRUGS (1)
  1. RITUXIMAB. [Suspect]
     Active Substance: RITUXIMAB
     Indication: CHRONIC CUTANEOUS LUPUS ERYTHEMATOSUS
     Route: 042

REACTIONS (3)
  - Product use in unapproved indication [Unknown]
  - Erythema [Recovered/Resolved]
  - Off label use [Unknown]
